FAERS Safety Report 18984559 (Version 1)
Quarter: 2021Q1

REPORT INFORMATION
  Report Type: Spontaneous
  Country: FR (occurrence: FR)
  Receive Date: 20210308
  Receipt Date: 20210308
  Transmission Date: 20210420
  Serious: Yes (Death)
  Sender: FDA-Public Use
  Company Number: FR-BAUSCH-BL-2021-006865

PATIENT
  Age: 21 Year
  Sex: Male

DRUGS (5)
  1. HEROIN [Suspect]
     Active Substance: DIAMORPHINE
     Indication: DRUG DEPENDENCE
     Dosage: 3 A 7 JETS
     Route: 045
     Dates: start: 2020, end: 2020
  2. DIAZEPAM. [Suspect]
     Active Substance: DIAZEPAM
     Indication: DRUG ABUSE
     Route: 065
     Dates: start: 2020, end: 2020
  3. CANNABIS [Suspect]
     Active Substance: CANNABIS SATIVA SUBSP. INDICA TOP
     Indication: DRUG ABUSE
     Route: 065
     Dates: start: 2020, end: 2020
  4. MORPHINE [Suspect]
     Active Substance: MORPHINE
     Indication: DRUG ABUSE
     Route: 065
     Dates: start: 2020, end: 2020
  5. COCAINE [Suspect]
     Active Substance: COCAINE
     Indication: DRUG ABUSE
     Route: 065
     Dates: start: 2020, end: 2020

REACTIONS (3)
  - Asphyxia [Fatal]
  - Drug abuse [Fatal]
  - Pulmonary oedema [Fatal]

NARRATIVE: CASE EVENT DATE: 2020
